FAERS Safety Report 7334172-6 (Version None)
Quarter: 2011Q1

REPORT INFORMATION
  Report Type: 
  Country: None (occurrence: None)
  Receive Date: 20110307
  Receipt Date: 20100105
  Transmission Date: 20110831
  Serious: No
  Sender: FDA-Public Use
  Company Number: US-BAYER-201010790NA

PATIENT
  Sex: Female

DRUGS (1)
  1. MIRENA [Suspect]
     Indication: ENDOMETRIOSIS
     Dosage: UNK
     Dates: start: 20091212

REACTIONS (5)
  - FLUID RETENTION [None]
  - HEADACHE [None]
  - MUSCLE SPASMS [None]
  - ACNE [None]
  - FATIGUE [None]
